FAERS Safety Report 11115508 (Version 1)
Quarter: 2015Q2

REPORT INFORMATION
  Report Type: Spontaneous
  Country: US (occurrence: None)
  Receive Date: 20150514
  Receipt Date: 20150514
  Transmission Date: 20150821
  Serious: Yes (Hospitalization)
  Sender: FDA-Public Use
  Company Number: None

PATIENT
  Age: 9 Year
  Sex: Male
  Weight: 27.5 kg

DRUGS (22)
  1. CHOLECALCIFEROL [Concomitant]
     Active Substance: CHOLECALCIFEROL
  2. ETHOSUXMIDE [Concomitant]
  3. METHYLPREDNISOLONE. [Concomitant]
     Active Substance: METHYLPREDNISOLONE
  4. PHENOBARBITAL. [Concomitant]
     Active Substance: PHENOBARBITAL
  5. RIBOFLAVIN [Concomitant]
     Active Substance: RIBOFLAVIN
  6. ZONISAMIDE. [Concomitant]
     Active Substance: ZONISAMIDE
  7. MELATONIN [Concomitant]
     Active Substance: MELATONIN
  8. DIAZEPAM. [Concomitant]
     Active Substance: DIAZEPAM
  9. BUDESONIDE. [Concomitant]
     Active Substance: BUDESONIDE
  10. TOBRAMYCIN. [Concomitant]
     Active Substance: TOBRAMYCIN
  11. GLYCOPYRROLATE. [Concomitant]
     Active Substance: GLYCOPYRROLATE
  12. LEUCOVORIN [Concomitant]
     Active Substance: LEUCOVORIN
  13. RANITIDINE [Concomitant]
     Active Substance: RANITIDINE\RANITIDINE HYDROCHLORIDE
  14. COQ10 [Concomitant]
     Active Substance: UBIDECARENONE
  15. THIAMINE [Concomitant]
     Active Substance: THIAMINE
  16. VALPROIC ACID. [Suspect]
     Active Substance: VALPROIC ACID
     Indication: SEIZURE
     Route: 042
  17. CLOBAZAM [Concomitant]
     Active Substance: CLOBAZAM
  18. METHSUXIMIDE [Concomitant]
     Active Substance: METHSUXIMIDE
  19. TRIAMCINONE [Concomitant]
  20. LEVOCARNITINE. [Concomitant]
     Active Substance: LEVOCARNITINE
  21. INFUSION [Concomitant]
     Active Substance: UNSPECIFIED INGREDIENT
  22. LIDOCAINE. [Concomitant]
     Active Substance: LIDOCAINE

REACTIONS (4)
  - Ammonia increased [None]
  - Depressed level of consciousness [None]
  - Seizure [None]
  - Condition aggravated [None]

NARRATIVE: CASE EVENT DATE: 20150314
